FAERS Safety Report 7820580-3 (Version None)
Quarter: 2011Q4

REPORT INFORMATION
  Report Type: 
  Country: None (occurrence: None)
  Receive Date: 20111018
  Receipt Date: 20111004
  Transmission Date: 20120403
  Serious: Yes (Life-Threatening, Hospitalization, Other)
  Sender: FDA-Public Use
  Company Number: US-BAYER-2010-009091

PATIENT
  Age: 14 Year
  Sex: Female
  Weight: 67 kg

DRUGS (3)
  1. DROSPIRENONE AND ETHINYL ESTRADIOL [Suspect]
     Indication: PREMENSTRUAL SYNDROME
     Dosage: UNK
     Dates: start: 20090901, end: 20091201
  2. ALBUTEROL INHALER [Concomitant]
     Dosage: UNK UNK, PRN
  3. CLARITIN [Concomitant]

REACTIONS (5)
  - CHOLECYSTITIS CHRONIC [None]
  - GALLBLADDER INJURY [None]
  - APPENDICITIS [None]
  - APPENDIX DISORDER [None]
  - PAIN [None]
